FAERS Safety Report 9168814 (Version 2)
Quarter: 2013Q2

REPORT INFORMATION
  Report Type: Report from Study
  Country: US (occurrence: US)
  Receive Date: 20130318
  Receipt Date: 20130430
  Transmission Date: 20140414
  Serious: Yes (Hospitalization)
  Sender: FDA-Public Use
  Company Number: US-PFIZER INC-2013077983

PATIENT
  Age: 58 Year
  Sex: Male
  Weight: 98.2 kg

DRUGS (7)
  1. CRIZOTINIB [Suspect]
     Indication: NON-SMALL CELL LUNG CANCER
     Dosage: 250 MG, 2X/DAY
     Route: 048
     Dates: start: 20120504
  2. CRIZOTINIB [Suspect]
     Dosage: 200 MG, 2X/DAY
     Route: 048
     Dates: start: 20120709, end: 20130304
  3. LOVENOX [Concomitant]
     Indication: PULMONARY EMBOLISM
     Dosage: 80 MG, QOD
     Route: 058
     Dates: start: 20111216
  4. VENTOLIN HFA [Concomitant]
     Indication: DYSPNOEA
     Dosage: 2 PUFFS AS NEEDED
     Route: 055
     Dates: start: 20120313
  5. SPIRIVA [Concomitant]
     Indication: DYSPNOEA
     Dosage: 18 UG, AS NEEDED
     Route: 055
     Dates: start: 20111005
  6. PREDNISONE [Concomitant]
     Dosage: 5 MG, 1X/DAY
     Route: 048
  7. PREDNISONE [Concomitant]
     Dosage: 2.5 MG, 1X/DAY
     Route: 048
     Dates: start: 20130215

REACTIONS (1)
  - Pneumocystis jirovecii pneumonia [Recovered/Resolved]
